FAERS Safety Report 7594770-1 (Version None)
Quarter: 2011Q3

REPORT INFORMATION
  Report Type: 
  Country: None (occurrence: None)
  Receive Date: 20110707
  Receipt Date: 20110630
  Transmission Date: 20111222
  Serious: Yes (Hospitalization)
  Sender: FDA-Public Use
  Company Number: AU-SANOFI-AVENTIS-2011SA041538

PATIENT
  Sex: Female

DRUGS (2)
  1. ARAVA [Suspect]
     Indication: ARTHRITIS
     Route: 065
     Dates: end: 20110301
  2. ARAVA [Suspect]
     Route: 065
     Dates: start: 20110501

REACTIONS (1)
  - MYOCARDITIS [None]
